FAERS Safety Report 8884960 (Version 2)
Quarter: 2012Q4

REPORT INFORMATION
  Report Type: 
  Country: US (occurrence: US)
  Receive Date: 20121102
  Receipt Date: 20121114
  Transmission Date: 20130627
  Serious: Yes (Death, Life-Threatening)
  Sender: FDA-Public Use
  Company Number: US-JNJFOC-20121013347

PATIENT
  Age: 14 Year
  Sex: Female

DRUGS (2)
  1. EVITHROM [Suspect]
     Indication: HAEMOSTASIS
     Route: 061
     Dates: start: 20120130, end: 20120130
  2. LOCAL HAEMOSTATICS [Suspect]
     Indication: HAEMOSTASIS
     Dosage: 11 units
     Route: 061
     Dates: start: 20120130, end: 20120130

REACTIONS (9)
  - Cardiac arrest [Fatal]
  - Respiratory distress [Unknown]
  - Pleural effusion [Unknown]
  - Unresponsive to stimuli [Unknown]
  - Hypotension [Unknown]
  - Tachycardia [Unknown]
  - Oliguria [Unknown]
  - Pulmonary embolism [Unknown]
  - Pulmonary granuloma [Unknown]
